FAERS Safety Report 7794427-8 (Version None)
Quarter: 2011Q4

REPORT INFORMATION
  Report Type: 
  Country: None (occurrence: None)
  Receive Date: 20111004
  Receipt Date: 20111004
  Transmission Date: 20120403
  Serious: Yes (Disabling, Other)
  Sender: FDA-Public Use
  Company Number: None

PATIENT
  Age: 65 Year
  Sex: Female
  Weight: 48.08 kg

DRUGS (1)
  1. METOPROLOL TARTRATE [Suspect]
     Indication: HEART RATE INCREASED
     Dosage: ONE TABLET  EVERY DAY
     Route: 048
     Dates: start: 20110610, end: 20110622

REACTIONS (10)
  - EYE PAIN [None]
  - HOT FLUSH [None]
  - PAIN IN EXTREMITY [None]
  - DIZZINESS [None]
  - MALAISE [None]
  - PRODUCT QUALITY ISSUE [None]
  - APPARENT DEATH [None]
  - HYPERHIDROSIS [None]
  - NAUSEA [None]
  - PARAESTHESIA [None]
